FAERS Safety Report 19554173 (Version 1)
Quarter: 2021Q3

REPORT INFORMATION
  Report Type: Spontaneous
  Country: US (occurrence: US)
  Receive Date: 20210715
  Receipt Date: 20210715
  Transmission Date: 20211014
  Serious: Yes (Death, Life-Threatening, Hospitalization)
  Sender: FDA-Public Use
  Company Number: US-MYLANLABS-2021M1042146

PATIENT
  Age: 10 Year
  Sex: Female

DRUGS (1)
  1. METHADONE [Suspect]
     Active Substance: METHADONE HYDROCHLORIDE
     Indication: PRODUCT USED FOR UNKNOWN INDICATION
     Dosage: RECEIVED LIQUID METHADONE
     Route: 048

REACTIONS (10)
  - Toxicity to various agents [Fatal]
  - Acute respiratory distress syndrome [Unknown]
  - Brain oedema [Unknown]
  - Pulseless electrical activity [Unknown]
  - Unresponsive to stimuli [Unknown]
  - Diabetes insipidus [Unknown]
  - Wrong product administered [Fatal]
  - Cerebral ischaemia [Unknown]
  - Aspiration [Unknown]
  - Brain injury [Unknown]
